FAERS Safety Report 25959272 (Version 1)
Quarter: 2025Q4

REPORT INFORMATION
  Report Type: Spontaneous
  Country: US (occurrence: US)
  Receive Date: 20251025
  Receipt Date: 20251025
  Transmission Date: 20260117
  Serious: No
  Sender: DAIICHI
  Company Number: US-DAIICHI SANKYO, INC.-DS-2025-170846-USAA

PATIENT
  Age: 74 Year
  Sex: Male

DRUGS (1)
  1. DATROWAY [Suspect]
     Active Substance: DATOPOTAMAB DERUXTECAN-DLNK
     Indication: Breast cancer male
     Dosage: 540 MG, ONCE EVERY 3 WK (OVER 90 MINUTES)
     Route: 042
     Dates: start: 20250814, end: 20251020

REACTIONS (1)
  - Therapy non-responder [Recovered/Resolved]

NARRATIVE: CASE EVENT DATE: 20251020
